FAERS Safety Report 9319881 (Version 1)
Quarter: 2013Q2

REPORT INFORMATION
  Report Type: Spontaneous
  Country: FR (occurrence: FR)
  Receive Date: 20130530
  Receipt Date: 20130530
  Transmission Date: 20140414
  Serious: Yes (Other)
  Sender: FDA-Public Use
  Company Number: FR-TEVA-407767ISR

PATIENT
  Age: 29 Year
  Sex: Female

DRUGS (2)
  1. COPAXONE [Suspect]
     Indication: MULTIPLE SCLEROSIS
     Route: 058
     Dates: start: 201109
  2. GONAL-F [Suspect]
     Indication: INFERTILITY
     Dates: start: 201304, end: 201304

REACTIONS (6)
  - Multiple sclerosis relapse [Not Recovered/Not Resolved]
  - Retinal oedema [Not Recovered/Not Resolved]
  - Injection site erythema [Not Recovered/Not Resolved]
  - Injection site induration [Not Recovered/Not Resolved]
  - Injection site pruritus [Not Recovered/Not Resolved]
  - Eye pain [Unknown]
